FAERS Safety Report 4778739-8 (Version None)
Quarter: 2005Q3

REPORT INFORMATION
  Report Type: 
  Country: None (occurrence: None)
  Receive Date: 20050926
  Receipt Date: 20050914
  Transmission Date: 20060218
  Serious: Yes (Other)
  Sender: FDA-Public Use
  Company Number: GB-BRISTOL-MYERS SQUIBB COMPANY-13115613

PATIENT
  Age: 38 Year
  Sex: Female
  Weight: 94 kg

DRUGS (5)
  1. METFORMIN HCL [Suspect]
     Route: 048
     Dates: start: 20050429
  2. CLOMIPHENE CITRATE [Suspect]
     Route: 048
     Dates: start: 20050429, end: 20050504
  3. FOLIC ACID [Concomitant]
     Route: 048
  4. COD LIVER OIL [Concomitant]
     Route: 048
  5. MULTI-VITAMINS [Concomitant]

REACTIONS (1)
  - DEEP VEIN THROMBOSIS [None]
